FAERS Safety Report 23953530 (Version 4)
Quarter: 2025Q1

REPORT INFORMATION
  Report Type: Spontaneous
  Country: US (occurrence: US)
  Receive Date: 20240608
  Receipt Date: 20250228
  Transmission Date: 20250409
  Serious: Yes (Disabling, Other)
  Sender: AMGEN
  Company Number: US-AMGEN-USASP2024109809

PATIENT
  Age: 64 Year
  Sex: Female

DRUGS (17)
  1. TEPEZZA [Suspect]
     Active Substance: TEPROTUMUMAB-TRBW
     Indication: Endocrine ophthalmopathy
     Route: 042
     Dates: start: 20210907
  2. TEPEZZA [Suspect]
     Active Substance: TEPROTUMUMAB-TRBW
     Indication: Graves^ disease
     Dosage: 1000 MILLIGRAM, Q3WK,  (UNK INFUSION, 636 MILLIGRAM ADMINISTRED, 364 MILLIGRAM WASTE)
     Route: 042
     Dates: start: 20211207
  3. TEPEZZA [Suspect]
     Active Substance: TEPROTUMUMAB-TRBW
     Dosage: 1500 MILLIGRAM, Q3WK, (UNK INFUSION 1294 MILLIGRAM ADMINISTRED, 206 MILLIGRAM WASTE)
     Route: 042
     Dates: start: 20211230
  4. TEPEZZA [Suspect]
     Active Substance: TEPROTUMUMAB-TRBW
     Dosage: 1500 MILLIGRAM, Q3WK, (UNK INFUSION, 1294 MILLIGRAM ADMINISTRED, 206 MILLIGRAM WASTE)
     Route: 042
     Dates: start: 20220120
  5. TEPEZZA [Suspect]
     Active Substance: TEPROTUMUMAB-TRBW
     Dosage: 1500 MILLIGRAM, Q3WK, UNK INFUSION, 1180 MILLIGRAM ADMINISTRED, 320 MILLIGRAM WASTE)
     Route: 042
     Dates: start: 20220210
  6. TEPEZZA [Suspect]
     Active Substance: TEPROTUMUMAB-TRBW
     Dosage: 1500 MILLIGRAM, Q3WK, UNK INFUSION, 1180 MILLIGRAM ADMINISTRED, 320 MILLIGRAM WASTE)
     Route: 042
     Dates: start: 20220303
  7. TEPEZZA [Suspect]
     Active Substance: TEPROTUMUMAB-TRBW
     Dosage: 1500 MILLIGRAM, Q3WK, (UNK INFUSION, 1180 MILLIGRAM ADMINISTRED, WASTE 320 MILLIGRAM)
     Route: 042
     Dates: start: 20220324
  8. TEPEZZA [Suspect]
     Active Substance: TEPROTUMUMAB-TRBW
     Dosage: 1500 MILLIGRAM, Q3WK, (UNK INFUSION 1072 MILLIGRAM ADMINISTRED, 428 MILLIGRAM WASTE)
     Route: 042
     Dates: start: 20220414
  9. TEPEZZA [Suspect]
     Active Substance: TEPROTUMUMAB-TRBW
     Route: 042
     Dates: start: 20220505
  10. TEPEZZA [Suspect]
     Active Substance: TEPROTUMUMAB-TRBW
     Route: 042
     Dates: start: 20220726
  11. SYNTHROID [Concomitant]
     Active Substance: LEVOTHYROXINE SODIUM
     Dosage: 88 MICROGRAM, QD
     Route: 065
     Dates: start: 1993
  12. PREMARIN [Concomitant]
     Active Substance: ESTROGENS, CONJUGATED
     Dosage: 625 MILLIGRAM, QD
     Route: 065
     Dates: start: 1993
  13. LIPITOR [Concomitant]
     Active Substance: ATORVASTATIN CALCIUM
     Dosage: 10 MILLIGRAM, QD
     Route: 065
     Dates: start: 2017
  14. TRULICITY [Concomitant]
     Active Substance: DULAGLUTIDE
     Dosage: UNK, QWK
     Route: 065
     Dates: start: 2020
  15. METFORMIN [Concomitant]
     Active Substance: METFORMIN HYDROCHLORIDE
     Route: 065
  16. FLONASE [Concomitant]
     Active Substance: FLUTICASONE PROPIONATE
     Route: 065
  17. ASTELIN [Concomitant]
     Active Substance: AZELASTINE HYDROCHLORIDE
     Route: 065

REACTIONS (15)
  - Endocrine ophthalmopathy [Unknown]
  - Graves^ disease [Unknown]
  - Deafness neurosensory [Not Recovered/Not Resolved]
  - Arrhythmia [Unknown]
  - Pain [Unknown]
  - Emotional distress [Unknown]
  - Anxiety [Unknown]
  - Product use complaint [Unknown]
  - Hypotension [Unknown]
  - Cardiac murmur [Unknown]
  - Rhinitis [Unknown]
  - Pruritus [Unknown]
  - Glycosylated haemoglobin increased [Unknown]
  - Blood glucose increased [Unknown]
  - Eustachian tube dysfunction [Unknown]

NARRATIVE: CASE EVENT DATE: 20220324
